FAERS Safety Report 16465595 (Version 3)
Quarter: 2019Q4

REPORT INFORMATION
  Report Type: Spontaneous
  Country: IT (occurrence: IT)
  Receive Date: 20190621
  Receipt Date: 20191003
  Transmission Date: 20200122
  Serious: Yes (Hospitalization, Other)
  Sender: FDA-Public Use
  Company Number: IT-MYLANLABS-2019M1057790

PATIENT
  Age: 57 Year
  Sex: Female

DRUGS (6)
  1. CASPOFUNGIN [Suspect]
     Active Substance: CASPOFUNGIN
     Dosage: 70 MG, UNK, ON DAY 1
     Route: 042
     Dates: end: 2005
  2. CASPOFUNGIN [Suspect]
     Active Substance: CASPOFUNGIN
     Indication: CANDIDA INFECTION
     Dosage: 70 MG, UNK, ON DAY 1
     Route: 042
     Dates: start: 2005, end: 2005
  3. PREDNISONE. [Suspect]
     Active Substance: PREDNISONE
     Indication: IMMUNOSUPPRESSION
     Dosage: UNK
  4. CASPOFUNGIN [Suspect]
     Active Substance: CASPOFUNGIN
     Indication: PYELONEPHRITIS
     Dosage: 50 MG, 1X/DAY
     Route: 042
     Dates: start: 2005
  5. CASPOFUNGIN [Suspect]
     Active Substance: CASPOFUNGIN
     Dosage: 50 MG, 1X/DAY
     Route: 042
  6. SIROLIMUS. [Suspect]
     Active Substance: SIROLIMUS
     Indication: IMMUNOSUPPRESSION
     Dosage: UNK
     Dates: start: 2005

REACTIONS (5)
  - Candida infection [Recovered/Resolved]
  - Cytomegalovirus infection [Recovered/Resolved]
  - Pneumocystis jirovecii infection [Recovered/Resolved]
  - Pyelonephritis fungal [Recovered/Resolved]
  - Drug ineffective [Recovered/Resolved]

NARRATIVE: CASE EVENT DATE: 2005
